FAERS Safety Report 17846526 (Version 1)
Quarter: 2020Q2

REPORT INFORMATION
  Report Type: Spontaneous
  Country: US (occurrence: US)
  Receive Date: 20200601
  Receipt Date: 20200601
  Transmission Date: 20200714
  Serious: No
  Sender: FDA-Public Use
  Company Number: None

PATIENT
  Age: 61 Year
  Sex: Female
  Weight: 49.5 kg

DRUGS (13)
  1. XGEVA [Concomitant]
     Active Substance: DENOSUMAB
  2. METOCLOPRAMIDE. [Concomitant]
     Active Substance: METOCLOPRAMIDE
  3. METOPROLOL. [Concomitant]
     Active Substance: METOPROLOL
  4. MIRTAZAPINE. [Concomitant]
     Active Substance: MIRTAZAPINE
  5. ZOFRAN [Concomitant]
     Active Substance: ONDANSETRON HYDROCHLORIDE
  6. OMEPRAZOLE. [Concomitant]
     Active Substance: OMEPRAZOLE
  7. ARIMIDEX [Concomitant]
     Active Substance: ANASTROZOLE
  8. OXYCODONE [Concomitant]
     Active Substance: OXYCODONE
  9. LORAZEPAM. [Concomitant]
     Active Substance: LORAZEPAM
  10. PROMETHAZINE [Concomitant]
     Active Substance: PROMETHAZINE HYDROCHLORIDE
  11. QUETIAPINE. [Concomitant]
     Active Substance: QUETIAPINE
  12. LETROZOLE. [Suspect]
     Active Substance: LETROZOLE
     Indication: BREAST CANCER
     Route: 048
     Dates: start: 20200504, end: 20200601
  13. TRAZODONE [Concomitant]
     Active Substance: TRAZODONE HYDROCHLORIDE

REACTIONS (1)
  - Death [None]

NARRATIVE: CASE EVENT DATE: 20200601
